FAERS Safety Report 7157933-5 (Version None)
Quarter: 2010Q4

REPORT INFORMATION
  Report Type: 
  Country: None (occurrence: None)
  Receive Date: 20101214
  Receipt Date: 20101206
  Transmission Date: 20110411
  Serious: Yes (Congenital Anomaly)
  Sender: FDA-Public Use
  Company Number: FR-MERCK-1012FRA00043B1

PATIENT

DRUGS (5)
  1. ISENTRESS [Suspect]
     Route: 064
  2. RITONAVIR [Suspect]
     Route: 064
  3. DARUNAVIR [Suspect]
     Route: 064
  4. ETRAVIRINE [Suspect]
     Route: 064
  5. ABACAVIR SULFATE AND LAMIVUDINE [Suspect]
     Route: 064

REACTIONS (1)
  - GROWTH RETARDATION [None]
